FAERS Safety Report 8088930-3 (Version None)
Quarter: 2012Q1

REPORT INFORMATION
  Report Type: 
  Country: None (occurrence: None)
  Receive Date: 20120128
  Receipt Date: 20110708
  Transmission Date: 20120608
  Serious: Yes (Hospitalization)
  Sender: FDA-Public Use
  Company Number: US-ABBOTT-10P-163-0639843-00

PATIENT
  Sex: Male
  Weight: 86.26 kg

DRUGS (9)
  1. HUMIRA [Suspect]
     Dosage: DAY 1
     Dates: start: 20100326, end: 20100326
  2. QUESTRAN [Concomitant]
     Indication: CROHN'S DISEASE
  3. SLOW FE [Concomitant]
     Indication: MINERAL SUPPLEMENTATION
  4. HUMIRA [Suspect]
     Indication: CROHN'S DISEASE
     Dosage: DAY 15
     Dates: start: 20100409
  5. LIALDA [Concomitant]
     Indication: PRODUCT USED FOR UNKNOWN INDICATION
  6. HUMIRA [Suspect]
     Dates: start: 20100901, end: 20101001
  7. HUMIRA [Suspect]
     Dosage: DAY 2
     Dates: start: 20100327, end: 20100327
  8. ENTOCORT EC [Concomitant]
     Indication: CROHN'S DISEASE
  9. CALTRATE [Concomitant]
     Indication: MINERAL SUPPLEMENTATION

REACTIONS (10)
  - HEADACHE [None]
  - INFLUENZA LIKE ILLNESS [None]
  - MALAISE [None]
  - BLOOD IRON DECREASED [None]
  - FATIGUE [None]
  - VITAMIN B12 DECREASED [None]
  - PAIN [None]
  - CROHN'S DISEASE [None]
  - LETHARGY [None]
  - OROPHARYNGEAL PAIN [None]
